FAERS Safety Report 23870425 (Version 2)
Quarter: 2024Q3

REPORT INFORMATION
  Report Type: Report from Study
  Country: CA (occurrence: CA)
  Receive Date: 20240518
  Receipt Date: 20240715
  Transmission Date: 20241017
  Serious: Yes (Hospitalization, Other)
  Sender: JOHNSON AND JOHNSON
  Company Number: CA-JNJFOC-20240317408

PATIENT
  Age: 48 Year
  Sex: Female

DRUGS (2)
  1. REMICADE [Suspect]
     Active Substance: INFLIXIMAB
     Indication: Crohn^s disease
     Route: 041
  2. REMICADE [Suspect]
     Active Substance: INFLIXIMAB
     Route: 041

REACTIONS (5)
  - Lower respiratory tract infection [Recovered/Resolved]
  - Pancreatitis [Recovered/Resolved]
  - Sinusitis [Recovered/Resolved]
  - Bacterial vaginosis [Recovered/Resolved]
  - Fungal infection [Recovered/Resolved]

NARRATIVE: CASE EVENT DATE: 20240503
